FAERS Safety Report 10250785 (Version 1)
Quarter: 2014Q2

REPORT INFORMATION
  Report Type: Spontaneous
  Country: DE (occurrence: DE)
  Receive Date: 20140620
  Receipt Date: 20140620
  Transmission Date: 20141212
  Serious: Yes (Death, Other)
  Sender: FDA-Public Use
  Company Number: DE-TEVA-488958GER

PATIENT
  Sex: Female

DRUGS (2)
  1. HALOPERIDOL [Suspect]
     Indication: PALLIATIVE CARE
     Route: 042
     Dates: start: 20120430, end: 20120507
  2. MORPHINE [Interacting]
     Indication: PALLIATIVE CARE
     Route: 042
     Dates: start: 20120430, end: 20120909

REACTIONS (4)
  - Sudden death [Fatal]
  - Somnolence [Unknown]
  - Bradycardia [Recovered/Resolved]
  - Drug interaction [Unknown]
